FAERS Safety Report 4811414-X (Version None)
Quarter: 2005Q4

REPORT INFORMATION
  Report Type: 
  Country: None (occurrence: None)
  Receive Date: 20051026
  Receipt Date: 20051026
  Transmission Date: 20060501
  Serious: Yes (Death)
  Sender: FDA-Public Use
  Company Number: None

PATIENT
  Age: 29 Year
  Sex: Male
  Weight: 133.8111 kg

DRUGS (1)
  1. CYMBALTA [Suspect]
     Indication: MAJOR DEPRESSION
     Dosage: 20 MG -}  30 -}  60 MG IN AM
     Dates: start: 20050114, end: 20050401

REACTIONS (7)
  - ALCOHOLISM [None]
  - CARDIAC ARREST [None]
  - DYSPNOEA [None]
  - HEPATIC NECROSIS [None]
  - HEPATITIS [None]
  - JAUNDICE [None]
  - MULTI-ORGAN FAILURE [None]
